FAERS Safety Report 10921406 (Version 1)
Quarter: 2015Q1

REPORT INFORMATION
  Report Type: Spontaneous
  Country: US (occurrence: None)
  Receive Date: 20150313
  Receipt Date: 20150313
  Transmission Date: 20150721
  Serious: Yes (Death)
  Sender: FDA-Public Use
  Company Number: None

PATIENT
  Age: 69 Year
  Sex: Male

DRUGS (1)
  1. AFINITOR [Suspect]
     Active Substance: EVEROLIMUS
     Indication: RENAL CANCER
     Route: 048
     Dates: start: 20140221, end: 20150307

REACTIONS (3)
  - Anaemia [None]
  - Decreased appetite [None]
  - Electrolyte imbalance [None]

NARRATIVE: CASE EVENT DATE: 20150307
